FAERS Safety Report 20195766 (Version 2)
Quarter: 2023Q1

REPORT INFORMATION
  Report Type: Report from Study
  Country: FR (occurrence: FR)
  Receive Date: 20211216
  Receipt Date: 20230113
  Transmission Date: 20230417
  Serious: Yes (Death)
  Sender: FDA-Public Use
  Company Number: FR-BAXTER-2021BAX034118

PATIENT
  Age: 68 Year
  Sex: Male

DRUGS (3)
  1. DEXAMETHASONE [Suspect]
     Active Substance: DEXAMETHASONE
     Indication: Plasma cell myeloma
     Dosage: 40MG,QW(1 WEEK/CYCLE)
     Route: 065
     Dates: end: 20191109
  2. DOXORUBICIN [Suspect]
     Active Substance: DOXORUBICIN
     Indication: Plasma cell myeloma
     Dosage: 9 MG/M2/DOSE 4 DOSE(S)/WEEK 1 WEEK(S)/CYCLE
     Route: 065
     Dates: end: 20191109
  3. DOXORUBICIN HYDROCHLORIDE [Suspect]
     Active Substance: DOXORUBICIN HYDROCHLORIDE
     Indication: Plasma cell myeloma
     Dosage: 36 MILLIGRAM/SQ. METER, QW (1 WEEK/CYCLE)
     Route: 065
     Dates: end: 20191109

REACTIONS (2)
  - Disease progression [Fatal]
  - General physical health deterioration [Unknown]

NARRATIVE: CASE EVENT DATE: 20191109
